FAERS Safety Report 4278357-4 (Version None)
Quarter: 2004Q1

REPORT INFORMATION
  Report Type: 
  Country: None (occurrence: None)
  Receive Date: 20040123
  Receipt Date: 20031027
  Transmission Date: 20041129
  Serious: Yes (Other)
  Sender: FDA-Public Use
  Company Number: US-ROCHE-350205

PATIENT
  Age: 48 Year
  Sex: Male
  Weight: 45.8 kg

DRUGS (5)
  1. FUZEON [Suspect]
     Indication: HIV INFECTION
     Route: 058
     Dates: start: 20031007
  2. VFEND [Suspect]
     Indication: FUNGAL INFECTION
     Route: 048
  3. INVIRASE [Suspect]
     Indication: HIV INFECTION
     Route: 048
  4. VIREAD [Concomitant]
     Indication: HIV INFECTION
     Route: 048
  5. KALETRA [Concomitant]
     Indication: HIV INFECTION
     Route: 048

REACTIONS (4)
  - ASPERGILLOSIS [None]
  - BLINDNESS UNILATERAL [None]
  - MEDICATION ERROR [None]
  - NERVOUS SYSTEM DISORDER [None]
